FAERS Safety Report 4441034-0 (Version None)
Quarter: 2004Q3

REPORT INFORMATION
  Report Type: 
  Country: None (occurrence: None)
  Receive Date: 20040831
  Receipt Date: 20040415
  Transmission Date: 20050211
  Serious: Yes (Hospitalization)
  Sender: FDA-Public Use
  Company Number: USA040360730

PATIENT
  Age: 6 Year
  Sex: Female

DRUGS (6)
  1. SYMBYAX [Suspect]
     Indication: BIPOLAR DISORDER
     Dosage: 1 DSG FORM / 2 DAY
     Dates: start: 20040201, end: 20040301
  2. SYMBYAX [Suspect]
     Indication: SCHIZOPHRENIA
     Dosage: 1 DSG FORM / 2 DAY
     Dates: start: 20040201, end: 20040301
  3. CHLORPROMAZINE [Concomitant]
  4. CLONIDINE HCL [Concomitant]
  5. RITALIN [Concomitant]
  6. CLARINEX [Concomitant]

REACTIONS (9)
  - COMPULSIONS [None]
  - DRUG INEFFECTIVE [None]
  - FEELING ABNORMAL [None]
  - PAIN IN EXTREMITY [None]
  - SKIN WARM [None]
  - SWELLING [None]
  - TREMOR [None]
  - URTICARIA [None]
  - WEIGHT INCREASED [None]
